FAERS Safety Report 6501160-9 (Version None)
Quarter: 2009Q4

REPORT INFORMATION
  Report Type: 
  Country: None (occurrence: None)
  Receive Date: 20091216
  Receipt Date: 20090824
  Transmission Date: 20100525
  Serious: No
  Sender: FDA-Public Use
  Company Number: A0803680A

PATIENT
  Age: 52 Year
  Sex: Female

DRUGS (1)
  1. NICOTINE POLACRILEX [Suspect]
     Indication: SMOKING CESSATION THERAPY
     Dates: start: 20090823, end: 20090823

REACTIONS (5)
  - DRY MOUTH [None]
  - MALAISE [None]
  - SWOLLEN TONGUE [None]
  - THIRST [None]
  - THROAT TIGHTNESS [None]
